FAERS Safety Report 13818891 (Version 1)
Quarter: 2017Q3

REPORT INFORMATION
  Report Type: Spontaneous
  Country: IN (occurrence: IN)
  Receive Date: 20170801
  Receipt Date: 20170801
  Transmission Date: 20171127
  Serious: Yes (Other)
  Sender: FDA-Public Use
  Company Number: IN-EDENBRIDGE PHARMACEUTICALS, LLC-IN-2017EDE000114

PATIENT
  Age: 46 Year
  Sex: Male

DRUGS (2)
  1. PREDNISOLONE SODIUM PHOSPHATE. [Suspect]
     Active Substance: PREDNISOLONE SODIUM PHOSPHATE
     Indication: TYPE 2 LEPRA REACTION
     Dosage: 10 MG, PRN
  2. PREDNISOLONE SODIUM PHOSPHATE. [Suspect]
     Active Substance: PREDNISOLONE SODIUM PHOSPHATE
     Dosage: 40 MG, QD

REACTIONS (2)
  - Type 2 lepra reaction [Recovered/Resolved]
  - Hypothalamo-pituitary disorder [Recovered/Resolved]
